FAERS Safety Report 7748300-1 (Version None)
Quarter: 2011Q3

REPORT INFORMATION
  Report Type: 
  Country: None (occurrence: None)
  Receive Date: 20110913
  Receipt Date: 20110906
  Transmission Date: 20111222
  Serious: Yes (Hospitalization)
  Sender: FDA-Public Use
  Company Number: PHHY2011KR79924

PATIENT
  Age: 79 Year
  Sex: Female

DRUGS (3)
  1. NAPROXEN [Suspect]
     Dosage: 275 MG DAILY
  2. PIROXICAM [Suspect]
     Dosage: 20 MG DAILY
  3. DICLOFENAC SODIUM [Suspect]
     Dosage: 25 MG DAILY

REACTIONS (8)
  - HAEMOGLOBIN DECREASED [None]
  - GASTROINTESTINAL ULCER [None]
  - HAEMATOCHEZIA [None]
  - GASTROINTESTINAL EROSION [None]
  - GASTROINTESTINAL HAEMORRHAGE [None]
  - INTESTINAL STENOSIS [None]
  - ABDOMINAL PAIN [None]
  - INTESTINAL DIAPHRAGM DISEASE [None]
